FAERS Safety Report 8250577-3 (Version None)
Quarter: 2012Q2

REPORT INFORMATION
  Report Type: 
  Country: None (occurrence: None)
  Receive Date: 20120402
  Receipt Date: 20120402
  Transmission Date: 20120825
  Serious: Yes (Other)
  Sender: FDA-Public Use
  Company Number: None

PATIENT
  Age: 27 Year
  Sex: Female

DRUGS (1)
  1. LEVETIRACETAM [Suspect]
     Dosage: 4
     Dates: start: 20120322, end: 20120401

REACTIONS (1)
  - TINNITUS [None]
